FAERS Safety Report 16532018 (Version 1)
Quarter: 2019Q3

REPORT INFORMATION
  Report Type: Spontaneous
  Country: GB (occurrence: GB)
  Receive Date: 20190704
  Receipt Date: 20190704
  Transmission Date: 20191004
  Serious: Yes (Other)
  Sender: FDA-Public Use
  Company Number: GB-ACCORD-136915

PATIENT
  Sex: Female

DRUGS (7)
  1. COCODAMOL [Concomitant]
     Active Substance: ACETAMINOPHEN\CODEINE PHOSPHATE
  2. IBUPROFEN. [Concomitant]
     Active Substance: IBUPROFEN
  3. PHENOXYMETHYLPENICILLIN [Concomitant]
     Active Substance: PENICILLIN V
  4. DOMPERIDONE [Concomitant]
     Active Substance: DOMPERIDONE
  5. SERTRALINE [Suspect]
     Active Substance: SERTRALINE HYDROCHLORIDE
     Indication: PRODUCT USED FOR UNKNOWN INDICATION
  6. PARACETAMOL [Concomitant]
     Active Substance: ACETAMINOPHEN
  7. CITALOPRAM [Suspect]
     Active Substance: CITALOPRAM HYDROBROMIDE
     Indication: DEPRESSION
     Dosage: 20-40MG,DATE OF LAST ADMINISTRATION: 2019
     Route: 048
     Dates: start: 2011

REACTIONS (9)
  - Abnormal weight gain [Not Recovered/Not Resolved]
  - Galactorrhoea [Not Recovered/Not Resolved]
  - Dry mouth [Recovered/Resolved]
  - Withdrawal syndrome [Unknown]
  - Tearfulness [Recovered/Resolved]
  - Fatigue [Recovered/Resolved]
  - Pain in jaw [Recovered/Resolved]
  - Aphasia [Recovered/Resolved]
  - Paraesthesia [Recovered/Resolved]

NARRATIVE: CASE EVENT DATE: 2011
